FAERS Safety Report 16490642 (Version 1)
Quarter: 2019Q2

REPORT INFORMATION
  Report Type: Spontaneous
  Country: US (occurrence: US)
  Receive Date: 20190628
  Receipt Date: 20190628
  Transmission Date: 20190711
  Serious: No
  Sender: FDA-Public Use
  Company Number: US-009507513-1906USA000587

PATIENT
  Sex: Female

DRUGS (1)
  1. NEXPLANON [Suspect]
     Active Substance: ETONOGESTREL
     Dosage: RIGHT/ IMPLANT, 3 YEAR
     Route: 059

REACTIONS (2)
  - Incorrect product administration duration [Unknown]
  - Product administration error [Unknown]
